FAERS Safety Report 5842364-8 (Version None)
Quarter: 2008Q3

REPORT INFORMATION
  Report Type: 
  Country: None (occurrence: None)
  Receive Date: 20080812
  Receipt Date: 20080805
  Transmission Date: 20090109
  Serious: Yes (Other)
  Sender: FDA-Public Use
  Company Number: CA-BOEHRINGER INGELHEIM GMBH, GERMANY-2008-DE-04650DE

PATIENT
  Age: 82 Year
  Sex: Female

DRUGS (12)
  1. AGGRENOX [Suspect]
     Route: 048
     Dates: start: 20060801, end: 20061101
  2. TAMOXIFEN CITRATE [Suspect]
     Indication: BREAST CANCER
     Dates: start: 20050301, end: 20060901
  3. ASASANTIN NON BI-DRUG [Suspect]
     Dates: start: 20060801, end: 20061001
  4. RAMIPRIL [Concomitant]
     Indication: HYPERTENSION
  5. METOPROLOL SUCCINATE [Concomitant]
     Indication: HYPERTENSION
  6. TRIMAG [Concomitant]
     Indication: HYPERTENSION
  7. ATORVASTATIN CALCIUM [Concomitant]
     Indication: BLOOD CHOLESTEROL
  8. ASCORBIC ACID [Concomitant]
  9. VITAMIN D [Concomitant]
  10. TOCOPHERYL ACETATE [Concomitant]
  11. CALCIUM CARBONATE [Concomitant]
  12. ALENDRONATE SODIUM [Concomitant]
     Indication: OSTEOPOROSIS

REACTIONS (8)
  - ANOREXIA [None]
  - BLOOD PRESSURE DECREASED [None]
  - DIARRHOEA [None]
  - DIZZINESS [None]
  - DYSGEUSIA [None]
  - NAUSEA [None]
  - TRANSIENT ISCHAEMIC ATTACK [None]
  - WEIGHT DECREASED [None]
